FAERS Safety Report 17065160 (Version 1)
Quarter: 2019Q4

REPORT INFORMATION
  Report Type: Spontaneous
  Country: GB (occurrence: GB)
  Receive Date: 20191122
  Receipt Date: 20191122
  Transmission Date: 20200122
  Serious: Yes (Life-Threatening, Hospitalization, Other)
  Sender: FDA-Public Use
  Company Number: GB-MYLANLABS-2019M1088593

PATIENT
  Age: 46 Year
  Sex: Male

DRUGS (5)
  1. FLUOXETINE [Concomitant]
     Active Substance: FLUOXETINE HYDROCHLORIDE
     Indication: DEPRESSION
     Dosage: 60 MILLIGRAM
  2. LANSOPRAZOLE. [Concomitant]
     Active Substance: LANSOPRAZOLE
     Indication: PRODUCT USED FOR UNKNOWN INDICATION
     Dosage: 30 MILLIGRAM, BID
  3. CLOZAPINE. [Suspect]
     Active Substance: CLOZAPINE
     Indication: SCHIZOPHRENIA
     Dosage: 300 MILLIGRAM (MIDDAY), 300 MG MIDDAY AND 400 MG NOCTE (MOST RECENT DOSE TAKEN IMMEDIATELY)
  4. CLOZAPINE. [Suspect]
     Active Substance: CLOZAPINE
     Dosage: 400 MILLIGRAM, PM
  5. CHOLECALCIFEROL [Concomitant]
     Active Substance: CHOLECALCIFEROL
     Indication: PRODUCT USED FOR UNKNOWN INDICATION
     Dosage: 800 DOSAGE FORM
     Route: 065

REACTIONS (14)
  - Renal impairment [Not Recovered/Not Resolved]
  - Blood bilirubin increased [Unknown]
  - Coma [Recovered/Resolved]
  - Sepsis [Recovered/Resolved]
  - Pleural effusion [Unknown]
  - Pneumonia [Unknown]
  - Faeces discoloured [Unknown]
  - Multi-organ disorder [Recovered/Resolved]
  - Blood potassium increased [Unknown]
  - Colitis ischaemic [Recovered/Resolved]
  - Intestinal ischaemia [Recovered/Resolved]
  - Escherichia infection [Recovered/Resolved]
  - Abdominal wall wound [Unknown]
  - Alanine aminotransferase increased [Unknown]
